FAERS Safety Report 6417011-7 (Version None)
Quarter: 2009Q4

REPORT INFORMATION
  Report Type: 
  Country: None (occurrence: None)
  Receive Date: 20091023
  Receipt Date: 20091008
  Transmission Date: 20100525
  Serious: Yes (Hospitalization)
  Sender: FDA-Public Use
  Company Number: 002141

PATIENT
  Age: 43 Year
  Sex: Female

DRUGS (6)
  1. OMEPRAZOLE [Suspect]
     Dosage: (20 MG ORAL)
     Route: 048
     Dates: start: 20060809
  2. SIMVASTATIN [Suspect]
     Dosage: (ORAL)
     Route: 048
  3. ACETAMINOPHEN [Suspect]
     Indication: UPPER RESPIRATORY TRACT INFECTION
     Dosage: (ORAL)
     Route: 048
     Dates: end: 20090101
  4. ASPIRIN [Suspect]
     Indication: MYOCARDIAL ISCHAEMIA
     Dosage: (3 MG ORAL)
     Route: 048
     Dates: start: 20060809, end: 20090106
  5. WARFARIN SODIUM [Suspect]
     Indication: MYOCARDIAL ISCHAEMIA
     Dosage: (3 MG ORAL)
     Route: 048
     Dates: start: 20060809, end: 20090106
  6. AMOXICILLIN AND CLAVULANATE POTASSIUM [Suspect]
     Indication: UPPER RESPIRATORY TRACT INFECTION
     Dosage: (625 MG ORAL)
     Route: 048
     Dates: end: 20090101

REACTIONS (13)
  - ABDOMINAL PAIN UPPER [None]
  - BLADDER DISORDER [None]
  - DIARRHOEA [None]
  - DYSURIA [None]
  - HAEMATOCRIT DECREASED [None]
  - HAEMOGLOBIN DECREASED [None]
  - INTERNATIONAL NORMALISED RATIO INCREASED [None]
  - INTRA-ABDOMINAL HAEMATOMA [None]
  - NASOPHARYNGITIS [None]
  - PERIORBITAL HAEMATOMA [None]
  - POLYURIA [None]
  - PRODUCTIVE COUGH [None]
  - URETHRAL DILATATION [None]
